FAERS Safety Report 8540415-3 (Version None)
Quarter: 2012Q3

REPORT INFORMATION
  Report Type: 
  Country: None (occurrence: None)
  Receive Date: 20120726
  Receipt Date: 20111214
  Transmission Date: 20120928
  Serious: No
  Sender: FDA-Public Use
  Company Number: US-ASTRAZENECA-2011SE32363

PATIENT
  Age: 27 Year
  Sex: Female

DRUGS (5)
  1. FLEXERIL [Concomitant]
     Dosage: 10 MG THREE TIMES A DAY AS NEEDED
  2. SEROQUEL [Suspect]
     Route: 048
  3. EFFEXOR [Concomitant]
  4. ALPRAZOLAM [Concomitant]
     Dosage: 2 MG ONE TABLET DAILY AS NEEDED
  5. SEROQUEL [Suspect]
     Indication: SLEEP DISORDER
     Route: 048

REACTIONS (3)
  - DRUG INEFFECTIVE FOR UNAPPROVED INDICATION [None]
  - INSOMNIA [None]
  - OFF LABEL USE [None]
